FAERS Safety Report 7218762-7 (Version None)
Quarter: 2011Q1

REPORT INFORMATION
  Report Type: 
  Country: None (occurrence: None)
  Receive Date: 20110110
  Receipt Date: 20100427
  Transmission Date: 20110831
  Serious: No
  Sender: FDA-Public Use
  Company Number: US-ABBOTT-10P-163-0639197-00

PATIENT
  Sex: Female
  Weight: 95.34 kg

DRUGS (1)
  1. VICODIN [Suspect]
     Indication: NERVE INJURY
     Dosage: 5/500MG X 8 IN 1 DAY
     Dates: start: 20080101

REACTIONS (1)
  - DRUG INEFFECTIVE [None]
